APPROVED DRUG PRODUCT: LOPERAMIDE HYDROCHLORIDE AND SIMETHICONE
Active Ingredient: LOPERAMIDE HYDROCHLORIDE; SIMETHICONE
Strength: 2MG;125MG
Dosage Form/Route: TABLET, CHEWABLE;ORAL
Application: A076029 | Product #001
Applicant: L PERRIGO CO
Approved: Aug 30, 2002 | RLD: No | RS: No | Type: DISCN